FAERS Safety Report 10035670 (Version 3)
Quarter: 2014Q2

REPORT INFORMATION
  Report Type: Spontaneous
  Country: AR (occurrence: AR)
  Receive Date: 20140325
  Receipt Date: 20140425
  Transmission Date: 20141212
  Serious: Yes (Death, Hospitalization)
  Sender: FDA-Public Use
  Company Number: PHHY2014AR035226

PATIENT
  Age: 44 Year
  Sex: Female

DRUGS (1)
  1. GILENYA [Suspect]
     Route: 048
     Dates: start: 201210, end: 201312

REACTIONS (10)
  - Skin ulcer [Fatal]
  - Renal failure [Fatal]
  - Sepsis [Unknown]
  - Cushingoid [Unknown]
  - Quadriplegia [Unknown]
  - Anaemia [Unknown]
  - Lung disorder [Unknown]
  - White blood cell count decreased [Unknown]
  - Nosocomial infection [Unknown]
  - Muscle spasticity [Unknown]
